FAERS Safety Report 6646698-9 (Version None)
Quarter: 2010Q1

REPORT INFORMATION
  Report Type: 
  Country: None (occurrence: None)
  Receive Date: 20100317
  Receipt Date: 20100302
  Transmission Date: 20100710
  Serious: Yes (Other)
  Sender: FDA-Public Use
  Company Number: US-1181066

PATIENT
  Sex: Male
  Weight: 77 kg

DRUGS (4)
  1. MIOSTAT [Suspect]
     Indication: CATARACT OPERATION
     Dosage: INTRAOCULAR
     Route: 031
     Dates: start: 20100126, end: 20100126
  2. VISCOAT [Concomitant]
  3. PROVISC [Concomitant]
  4. FLOMAX (FLOMAX) [Concomitant]

REACTIONS (3)
  - CORNEAL OEDEMA [None]
  - PRODUCT DEPOSIT [None]
  - VISUAL ACUITY REDUCED [None]
